FAERS Safety Report 5447302-8 (Version None)
Quarter: 2007Q3

REPORT INFORMATION
  Report Type: 
  Country: None (occurrence: None)
  Receive Date: 20070905
  Receipt Date: 20070905
  Transmission Date: 20080115
  Serious: Yes (Congenital Anomaly)
  Sender: FDA-Public Use
  Company Number: None

PATIENT
  Sex: Female

DRUGS (2)
  1. LEXAPRO [Suspect]
     Indication: INSOMNIA
     Route: 048
     Dates: start: 20060608, end: 20060621
  2. LEXAPRO [Suspect]
     Indication: MAJOR DEPRESSION
     Route: 048
     Dates: start: 20060608, end: 20060621

REACTIONS (4)
  - CAESAREAN SECTION [None]
  - CONVULSION [None]
  - CRANIOSYNOSTOSIS [None]
  - DRUG EXPOSURE DURING PREGNANCY [None]
